FAERS Safety Report 6894850-X (Version None)
Quarter: 2010Q3

REPORT INFORMATION
  Report Type: 
  Country: None (occurrence: None)
  Receive Date: 20100708
  Receipt Date: 20100414
  Transmission Date: 20110219
  Serious: Yes (Other)
  Sender: FDA-Public Use
  Company Number: 2010047960

PATIENT
  Age: 57 Year
  Sex: Female
  Weight: 68 kg

DRUGS (12)
  1. CHANTIX [Suspect]
     Indication: SMOKING CESSATION THERAPY
     Dosage: 0.5 MG, 1X/DAY, ORAL : 0.5 MG, 2X/DAY, ORAL
     Route: 048
     Dates: end: 20100407
  2. CHANTIX [Suspect]
     Indication: SMOKING CESSATION THERAPY
     Dosage: 0.5 MG, 1X/DAY, ORAL : 0.5 MG, 2X/DAY, ORAL
     Route: 048
     Dates: start: 20100301
  3. SEROQUEL [Concomitant]
  4. PLAVIX [Concomitant]
  5. METFORMIN HCL [Concomitant]
  6. FUROSEMIDE [Concomitant]
  7. OXYCODONE HCL [Concomitant]
  8. MIRAPEX [Concomitant]
  9. ZETIA [Concomitant]
  10. ZANAFLEX [Concomitant]
  11. NEXIUM [Concomitant]
  12. AMBIEN [Concomitant]

REACTIONS (2)
  - CHEST DISCOMFORT [None]
  - CHEST PAIN [None]
